FAERS Safety Report 5071263-7 (Version None)
Quarter: 2006Q3

REPORT INFORMATION
  Report Type: 
  Country: None (occurrence: None)
  Receive Date: 20060804
  Receipt Date: 20060508
  Transmission Date: 20061208
  Serious: Yes (Hospitalization, Disabling)
  Sender: FDA-Public Use
  Company Number: JP-SP-2006-01066

PATIENT
  Age: 65 Year
  Sex: Male

DRUGS (3)
  1. IMMUCYST [Suspect]
     Indication: BLADDER CANCER
     Route: 043
     Dates: start: 20060327
  2. NORFLOXACIN [Concomitant]
     Route: 048
     Dates: start: 20060327
  3. SODIUM AZULENE SULFONATE L-GLUTAMINE [Concomitant]
     Route: 048
     Dates: start: 20060327

REACTIONS (3)
  - DYSURIA [None]
  - POLLAKIURIA [None]
  - URINARY TRACT INFECTION [None]
